FAERS Safety Report 9044927 (Version 1)
Quarter: 2013Q1

REPORT INFORMATION
  Report Type: Spontaneous
  Country: FR (occurrence: FR)
  Receive Date: 20130130
  Receipt Date: 20130130
  Transmission Date: 20140127
  Serious: Yes (Hospitalization)
  Sender: FDA-Public Use
  Company Number: FR-GLAXOSMITHKLINE-B0861480A

PATIENT
  Age: 81 None
  Sex: Male
  Weight: 77 kg

DRUGS (8)
  1. ZOPHREN [Suspect]
     Indication: PROPHYLAXIS
     Dosage: 4MG TWICE PER DAY
     Route: 042
     Dates: start: 20120315, end: 20120319
  2. VIDAZA [Suspect]
     Indication: MYELOID LEUKAEMIA
     Dosage: 140MG PER DAY
     Route: 042
     Dates: start: 20120315, end: 20120321
  3. EMEND [Suspect]
     Indication: PROPHYLAXIS
     Route: 065
     Dates: start: 20120315, end: 20120319
  4. INEXIUM [Suspect]
     Indication: PROPHYLAXIS
     Dosage: 40MG PER DAY
     Route: 048
     Dates: start: 20120320
  5. ZELITREX [Concomitant]
  6. ARANESP [Concomitant]
     Dosage: 50MCG WEEKLY
  7. ATARAX [Concomitant]
  8. VENOFER [Concomitant]

REACTIONS (2)
  - Renal failure acute [Recovered/Resolved with Sequelae]
  - Haematuria [Unknown]
